FAERS Safety Report 9337082 (Version 1)
Quarter: 2013Q2

REPORT INFORMATION
  Report Type: Spontaneous
  Country: US (occurrence: US)
  Receive Date: 20130607
  Receipt Date: 20130607
  Transmission Date: 20140414
  Serious: No
  Sender: FDA-Public Use
  Company Number: US-009507513-1305USA009131

PATIENT
  Age: 18 Year
  Sex: Male

DRUGS (3)
  1. DULERA [Suspect]
     Indication: ASTHMA
     Dosage: 100 MCG/5MCG 2 GTT, BID
     Route: 055
     Dates: start: 20130414, end: 20130513
  2. DULERA [Suspect]
     Indication: HYPERSENSITIVITY
  3. NASONEX [Concomitant]

REACTIONS (6)
  - Speech disorder [Recovering/Resolving]
  - Device use error [Recovering/Resolving]
  - Dyspnoea [Recovering/Resolving]
  - Cough decreased [Recovering/Resolving]
  - Poor quality sleep [Recovering/Resolving]
  - Oropharyngeal pain [Recovering/Resolving]
